FAERS Safety Report 8889914 (Version 2)
Quarter: 2013Q1

REPORT INFORMATION
  Report Type: Spontaneous
  Country: GB (occurrence: None)
  Receive Date: 20121031
  Receipt Date: 20121031
  Transmission Date: 20140127
  Serious: Yes (Hospitalization, Other)
  Sender: FDA-Public Use
  Company Number: 2012AP003461

PATIENT
  Age: 43 Year
  Sex: Female

DRUGS (5)
  1. CITALOPRAM (CITALOPRAM) [Suspect]
     Indication: INTENTIONAL OVERDOSE
  2. DILTIAZEM [Suspect]
     Indication: INTENTIONAL OVERDOSE
  3. GABAPENTIN (GABAPENTIN) [Suspect]
     Indication: INTENTIONAL OVERDOSE
  4. DIAZEPAM (DIAZEPAM) [Suspect]
     Indication: INTENTIONAL OVERDOSE
  5. IRBESARTAN [Suspect]
     Indication: INTENTIONAL OVERDOSE

REACTIONS (8)
  - Intentional overdose [None]
  - Left ventricular dysfunction [None]
  - Renal impairment [None]
  - Atrioventricular block complete [None]
  - Pulmonary oedema [None]
  - Hypoxia [None]
  - Hypotension [None]
  - Bradycardia [None]
